FAERS Safety Report 7364646-3 (Version None)
Quarter: 2011Q1

REPORT INFORMATION
  Report Type: 
  Country: None (occurrence: None)
  Receive Date: 20110321
  Receipt Date: 20110222
  Transmission Date: 20110831
  Serious: No
  Sender: FDA-Public Use
  Company Number: US-B.I. PHARMACEUTICALS,INC./RIDGEFIELD-2011-BP-06498BP

PATIENT
  Sex: Female

DRUGS (6)
  1. PRADAXA [Suspect]
     Indication: ATRIAL FIBRILLATION
     Dosage: 300 MG
     Route: 048
     Dates: start: 20110201
  2. FLECAINIDE ACETATE [Concomitant]
     Indication: ATRIAL FIBRILLATION
  3. METOPROLOL SUCCINATE [Concomitant]
     Indication: ATRIAL FIBRILLATION
  4. IRON [Concomitant]
     Indication: PROPHYLAXIS
  5. SYNTHROID [Concomitant]
     Indication: HYPOTHYROIDISM
  6. PRILOSEC [Concomitant]
     Indication: HIATUS HERNIA

REACTIONS (3)
  - HEADACHE [None]
  - DIZZINESS [None]
  - FATIGUE [None]
